FAERS Safety Report 19374742 (Version 1)
Quarter: 2021Q2

REPORT INFORMATION
  Report Type: Spontaneous
  Country: GB (occurrence: GB)
  Receive Date: 20210604
  Receipt Date: 20210604
  Transmission Date: 20210717
  Serious: Yes (Death)
  Sender: FDA-Public Use
  Company Number: GB-BECTON DICKINSON-GB-BD-21-000139

PATIENT
  Sex: Male

DRUGS (1)
  1. CHLORAPREP [Suspect]
     Active Substance: CHLORHEXIDINE GLUCONATE\ISOPROPYL ALCOHOL
     Indication: INFECTION PROPHYLAXIS
     Dosage: 1.5 MILLILITER, UNK
     Route: 065
     Dates: start: 20210507, end: 20210507

REACTIONS (1)
  - Skin irritation [Fatal]

NARRATIVE: CASE EVENT DATE: 20210507
